FAERS Safety Report 8564200 (Version 4)
Quarter: 2012Q4

REPORT INFORMATION
  Report Type: 
  Country: DE (occurrence: DE)
  Receive Date: 20120516
  Receipt Date: 20121127
  Transmission Date: 20130627
  Serious: Yes (Hospitalization, Other)
  Sender: FDA-Public Use
  Company Number: PHHY2012DE041180

PATIENT
  Age: 77 Year
  Sex: Male
  Weight: 72.5 kg

DRUGS (2)
  1. ZOMETA [Suspect]
     Indication: METASTASES TO BONE
     Dosage: 4mg/5ml every 4 weeks
     Route: 042
     Dates: start: 20091227
  2. REQUIP [Concomitant]
     Indication: PARKINSON^S DISEASE

REACTIONS (5)
  - Osteonecrosis of jaw [Unknown]
  - Jaw disorder [Unknown]
  - Erythema [Unknown]
  - Bone swelling [Unknown]
  - Pain [Unknown]
